FAERS Safety Report 19621866 (Version 1)
Quarter: 2021Q3

REPORT INFORMATION
  Report Type: Spontaneous
  Country: US (occurrence: US)
  Receive Date: 20210728
  Receipt Date: 20210728
  Transmission Date: 20211014
  Serious: Yes (Other)
  Sender: FDA-Public Use
  Company Number: NVSC2021US159972

PATIENT
  Sex: Female

DRUGS (2)
  1. PROMACTA [Suspect]
     Active Substance: ELTROMBOPAG OLAMINE
     Dosage: 25 MG, QD  (STRENGTH:25 MG)
     Route: 048
     Dates: start: 20210617
  2. PROMACTA [Suspect]
     Active Substance: ELTROMBOPAG OLAMINE
     Indication: IMMUNE THROMBOCYTOPENIA
     Dosage: 50 MG, QD (STRENGTH:50 MG)
     Route: 048
     Dates: start: 20210617

REACTIONS (3)
  - Condition aggravated [Unknown]
  - Immune thrombocytopenia [Unknown]
  - Platelet count decreased [Unknown]
